FAERS Safety Report 7220164-4 (Version None)
Quarter: 2011Q1

REPORT INFORMATION
  Report Type: 
  Country: None (occurrence: None)
  Receive Date: 20110111
  Receipt Date: 20101228
  Transmission Date: 20110831
  Serious: No
  Sender: FDA-Public Use
  Company Number: US-B.I. PHARMACEUTICALS,INC./RIDGEFIELD-2011-BP-00332BP

PATIENT
  Age: 78 Year
  Sex: Male

DRUGS (9)
  1. LASIX [Concomitant]
     Dosage: 80 MG
     Route: 048
  2. MULTI-VITAMIN [Concomitant]
     Dosage: 1 TABLET
     Route: 048
  3. DIGOXIN [Concomitant]
     Dosage: 0.125 MG
     Route: 048
  4. CARVEDILOL [Concomitant]
     Dosage: 25 MG
     Route: 048
  5. MEFORMIN [Concomitant]
     Dosage: 2000 MG
     Route: 048
  6. LOVASTATIN [Concomitant]
     Dosage: 20 MG
     Route: 048
  7. PRADAXA [Suspect]
     Route: 048
     Dates: start: 20101101, end: 20101101
  8. RAMIPRIL [Concomitant]
     Indication: HYPERTENSION
     Dosage: 10 MG
     Route: 048
  9. ASPIRIN [Concomitant]
     Dosage: 81 MG
     Route: 048

REACTIONS (2)
  - THROMBOSIS [None]
  - HYPOAESTHESIA [None]
